FAERS Safety Report 7919988-7 (Version None)
Quarter: 2011Q4

REPORT INFORMATION
  Report Type: 
  Country: None (occurrence: None)
  Receive Date: 20111117
  Receipt Date: 20111106
  Transmission Date: 20120403
  Serious: Yes (Hospitalization)
  Sender: FDA-Public Use
  Company Number: NL-MEDIMMUNE-MEDI-0013912

PATIENT
  Sex: Male

DRUGS (1)
  1. SYNAGIS [Suspect]
     Indication: PREMATURE BABY
     Dates: start: 20110908, end: 20111104

REACTIONS (3)
  - DYSPNOEA [None]
  - RESPIRATORY RATE INCREASED [None]
  - WHEEZING [None]
